FAERS Safety Report 7657133-6 (Version None)
Quarter: 2011Q3

REPORT INFORMATION
  Report Type: 
  Country: None (occurrence: None)
  Receive Date: 20110804
  Receipt Date: 20110413
  Transmission Date: 20111222
  Serious: No
  Sender: FDA-Public Use
  Company Number: US-GLAXOSMITHKLINE-A0922853A

PATIENT
  Age: 45 Year
  Sex: Female

DRUGS (3)
  1. ALLEGRA [Concomitant]
  2. ADVAIR DISKUS 100/50 [Suspect]
     Indication: ASTHMA
     Dosage: 2PUFF TWICE PER DAY
     Route: 055
     Dates: start: 20110301, end: 20110301
  3. UNSPECIFIED INHALER [Concomitant]

REACTIONS (2)
  - ILL-DEFINED DISORDER [None]
  - DRUG INEFFECTIVE [None]
